FAERS Safety Report 6453982-0 (Version None)
Quarter: 2009Q4

REPORT INFORMATION
  Report Type: 
  Country: None (occurrence: None)
  Receive Date: 20091124
  Receipt Date: 20091110
  Transmission Date: 20100525
  Serious: Yes (Other)
  Sender: FDA-Public Use
  Company Number: US-MYLANLABS-2009S1019501

PATIENT
  Age: 49 Year
  Sex: Female

DRUGS (3)
  1. TACROLIMUS [Suspect]
     Indication: IMMUNOSUPPRESSION
     Dosage: DOSAGE NOT STATED
     Dates: start: 20010101
  2. MYCOPHENOLATE MOFETIL [Suspect]
     Indication: IMMUNOSUPPRESSION
     Dosage: DOSAGE NOT STATED
     Dates: start: 20010101
  3. PREDNISONE [Suspect]
     Indication: IMMUNOSUPPRESSION
     Dosage: DOSAGE NOT STATED
     Dates: start: 20010101

REACTIONS (4)
  - CYTOMEGALOVIRUS INFECTION [None]
  - OPTIC NERVE DISORDER [None]
  - VISUAL ACUITY REDUCED [None]
  - VISUAL PATHWAY DISORDER [None]
